FAERS Safety Report 8890940 (Version 1)
Quarter: 2012Q4

REPORT INFORMATION
  Report Type: 
  Country: US (occurrence: US)
  Receive Date: 20121106
  Receipt Date: 20121106
  Transmission Date: 20130627
  Serious: Yes (Death)
  Sender: FDA-Public Use
  Company Number: US-CELGENEUS-163-20785-12110060

PATIENT
  Sex: Female

DRUGS (3)
  1. THALOMID [Suspect]
     Indication: PYODERMA GANGRENOSUM
     Dosage: 100 Milligram
     Route: 048
     Dates: start: 201202
  2. THALOMID [Suspect]
     Dosage: 100 Milligram
     Route: 048
     Dates: start: 201203
  3. THALOMID [Suspect]
     Dosage: 200 Milligram
     Route: 048
     Dates: start: 201206

REACTIONS (1)
  - Diabetic complication [Fatal]
